FAERS Safety Report 17113256 (Version 1)
Quarter: 2019Q4

REPORT INFORMATION
  Report Type: Spontaneous
  Country: IT (occurrence: IT)
  Receive Date: 20191204
  Receipt Date: 20191204
  Transmission Date: 20200122
  Serious: Yes (Other)
  Sender: FDA-Public Use
  Company Number: IT-BAXTER-2019BAX023932

PATIENT
  Sex: Male
  Weight: 100 kg

DRUGS (3)
  1. HOLOXAN [Suspect]
     Active Substance: IFOSFAMIDE
     Indication: SARCOMA
     Dosage: 1 VIAL, ENDOVENOUS
     Route: 042
     Dates: start: 20191029, end: 20191030
  2. UROMITEXAN 400 MG/ 4ML [Suspect]
     Active Substance: MESNA
     Indication: PROPHYLAXIS
     Route: 065
  3. EPIRUBICIN HYDROCHLORIDE. [Suspect]
     Active Substance: EPIRUBICIN HYDROCHLORIDE
     Indication: SARCOMA
     Dosage: ENDOVENOUS
     Route: 042
     Dates: start: 20191029, end: 20191030

REACTIONS (3)
  - Hypercreatininaemia [Recovered/Resolved with Sequelae]
  - Acute kidney injury [Recovered/Resolved with Sequelae]
  - Haematuria [Recovered/Resolved with Sequelae]

NARRATIVE: CASE EVENT DATE: 20191104
